FAERS Safety Report 7309198-9 (Version None)
Quarter: 2011Q1

REPORT INFORMATION
  Report Type: 
  Country: None (occurrence: None)
  Receive Date: 20110210
  Receipt Date: 20110120
  Transmission Date: 20110831
  Serious: Yes (Death)
  Sender: FDA-Public Use
  Company Number: AE11-016-1

PATIENT
  Age: 43 Year
  Sex: Male

DRUGS (3)
  1. LORCET-HD [Suspect]
  2. ALPRAZOLAM [Suspect]
  3. NEBIVOLOL HCL [Suspect]

REACTIONS (4)
  - CARDIAC ARREST [None]
  - RESPIRATORY ARREST [None]
  - COMPLETED SUICIDE [None]
  - MULTIPLE DRUG OVERDOSE INTENTIONAL [None]
